FAERS Safety Report 10969417 (Version 1)
Quarter: 2015Q1

REPORT INFORMATION
  Report Type: Spontaneous
  Country: GB (occurrence: None)
  Receive Date: 20150327
  Receipt Date: 20150327
  Transmission Date: 20150721
  Serious: Yes (Other)
  Sender: FDA-Public Use
  Company Number: GB-DEXPHARM-20150190

PATIENT
  Age: 21 Year
  Sex: Female

DRUGS (4)
  1. PARACETAMOL [Concomitant]
     Active Substance: ACETAMINOPHEN
  2. OMEPRAZOLE ACTIVE SUBSTANCES: OMEPRAZOLE [Suspect]
     Active Substance: OMEPRAZOLE
     Indication: GASTRITIS
     Route: 048
     Dates: start: 20150208
  3. BUSCOPAN [Concomitant]
     Active Substance: BUTYLSCOPOLAMINE BROMIDE
  4. ESOMEPRAZOLE [Concomitant]
     Active Substance: ESOMEPRAZOLE

REACTIONS (7)
  - Dizziness [None]
  - Diarrhoea [None]
  - Disturbance in attention [None]
  - Blood glucose abnormal [None]
  - Decreased appetite [None]
  - Headache [None]
  - Pyrexia [None]
